FAERS Safety Report 9925484 (Version 1)
Quarter: 2014Q1

REPORT INFORMATION
  Report Type: Spontaneous
  Country: US (occurrence: None)
  Receive Date: 20140224
  Receipt Date: 20140224
  Transmission Date: 20141002
  Serious: Yes (Death)
  Sender: FDA-Public Use
  Company Number: NL01PV14.35153

PATIENT
  Age: 34 Year
  Sex: Female

DRUGS (6)
  1. ZOLPIDEM [Suspect]
  2. SERTRALINE [Suspect]
  3. MORPHINE [Suspect]
  4. ACETAMINOPHEN W/HYDROCODONE [Suspect]
  5. CARISOPRODOL [Suspect]
  6. SALICYLATES NOS [Suspect]

REACTIONS (2)
  - Drug abuse [None]
  - Exposure via ingestion [None]
